FAERS Safety Report 18986449 (Version 1)
Quarter: 2021Q1

REPORT INFORMATION
  Report Type: Spontaneous
  Country: HU (occurrence: HU)
  Receive Date: 20210309
  Receipt Date: 20210309
  Transmission Date: 20210420
  Serious: Yes (Other)
  Sender: FDA-Public Use
  Company Number: NVSC2021HU044959

PATIENT
  Age: 73 Year
  Sex: Female

DRUGS (4)
  1. RIBOCICLIB. [Suspect]
     Active Substance: RIBOCICLIB
     Indication: INVASIVE DUCTAL BREAST CARCINOMA
     Dosage: 200 MG (1X3)
     Route: 065
     Dates: start: 20190927
  2. RIBOCICLIB. [Suspect]
     Active Substance: RIBOCICLIB
     Dosage: 200 MG (3X)
     Route: 065
     Dates: start: 20201204
  3. LETROZOLE. [Suspect]
     Active Substance: LETROZOLE
     Indication: INVASIVE DUCTAL BREAST CARCINOMA
     Dosage: UNK
     Route: 065
     Dates: start: 20190927
  4. KISQALI [Suspect]
     Active Substance: RIBOCICLIB
     Indication: INVASIVE DUCTAL BREAST CARCINOMA
     Dosage: 200 MG, BID (2X/DAY)
     Route: 065

REACTIONS (14)
  - Erythema [Recovering/Resolving]
  - Ventricular extrasystoles [Unknown]
  - Pruritus [Recovered/Resolved]
  - Skin exfoliation [Recovering/Resolving]
  - Supraventricular extrasystoles [Unknown]
  - Pain of skin [Recovering/Resolving]
  - Neurodermatitis [Unknown]
  - Extrasystoles [Unknown]
  - Rash maculo-papular [Recovering/Resolving]
  - Anaemia [Unknown]
  - Bradycardia [Unknown]
  - Arrhythmia [Unknown]
  - White blood cell count decreased [Unknown]
  - Lymph nodes scan abnormal [Unknown]

NARRATIVE: CASE EVENT DATE: 201912
